FAERS Safety Report 9965193 (Version 1)
Quarter: 2014Q1

REPORT INFORMATION
  Report Type: Report from Study
  Country: US (occurrence: US)
  Receive Date: 20140305
  Receipt Date: 20140305
  Transmission Date: 20141002
  Serious: No
  Sender: FDA-Public Use
  Company Number: US-ABBVIE-13P-163-1125875-00

PATIENT
  Age: 50 Year
  Sex: Male
  Weight: 95.34 kg

DRUGS (2)
  1. HUMIRA [Suspect]
     Indication: PSORIASIS
     Dates: start: 201102, end: 2012
  2. HUMIRA [Suspect]
     Dates: start: 201301, end: 201307

REACTIONS (3)
  - Dry skin [Recovered/Resolved]
  - Psoriasis [Recovered/Resolved]
  - Rash macular [Recovered/Resolved]
